FAERS Safety Report 9187325 (Version 1)
Quarter: 2012Q4

REPORT INFORMATION
  Report Type: 
  Country: FR (occurrence: FR)
  Receive Date: 20121109
  Receipt Date: 20121112
  Transmission Date: 20130627
  Serious: Yes (Life-Threatening, Hospitalization)
  Sender: FDA-Public Use
  Company Number: FR-RB-046486-12

PATIENT
  Sex: Male

DRUGS (1)
  1. SUBUTEX [Suspect]
     Indication: DRUG DEPENDENCE
     Route: 042
     Dates: end: 2012

REACTIONS (4)
  - Intervertebral discitis [Recovering/Resolving]
  - Pleurisy [Unknown]
  - Drug dependence [Recovering/Resolving]
  - Intentional drug misuse [Recovering/Resolving]
